FAERS Safety Report 5327780-5 (Version None)
Quarter: 2007Q1

REPORT INFORMATION
  Report Type: 
  Country: None (occurrence: None)
  Receive Date: 20070226
  Receipt Date: 20061228
  Transmission Date: 20070707
  Serious: Yes (Disabling)
  Sender: FDA-Public Use
  Company Number: WAES 0612USA04176

PATIENT
  Age: 41 Year
  Sex: Male

DRUGS (4)
  1. VYTORIN [Suspect]
     Indication: HYPERLIPIDAEMIA
     Dosage: 10-40 MG/DAILY/PO
     Route: 048
  2. TOPAMAX [Concomitant]
  3. ZOMIG [Concomitant]
  4. ASPIRIN [Concomitant]

REACTIONS (1)
  - POLYNEUROPATHY [None]
